FAERS Safety Report 6134599-4 (Version None)
Quarter: 2009Q1

REPORT INFORMATION
  Report Type: 
  Country: None (occurrence: None)
  Receive Date: 20090327
  Receipt Date: 20090318
  Transmission Date: 20090719
  Serious: Yes (Hospitalization)
  Sender: FDA-Public Use
  Company Number: US-BRISTOL-MYERS SQUIBB COMPANY-14441083

PATIENT
  Age: 82 Year
  Sex: Female
  Weight: 63 kg

DRUGS (2)
  1. SINEMET [Suspect]
     Indication: PARKINSON'S DISEASE
     Dosage: 1 DF= 25MG/100MG, 2 TABLETS; 1988-NOV08;X3836 BATCH STARTED IN NOV08-UNK
     Route: 048
     Dates: start: 19880101, end: 20081101
  2. REQUIP [Concomitant]

REACTIONS (4)
  - AFFECT LABILITY [None]
  - MEMORY IMPAIRMENT [None]
  - POOR QUALITY DRUG ADMINISTERED [None]
  - SOMNOLENCE [None]
